FAERS Safety Report 7360086-1 (Version None)
Quarter: 2011Q1

REPORT INFORMATION
  Report Type: 
  Country: None (occurrence: None)
  Receive Date: 20110318
  Receipt Date: 20110310
  Transmission Date: 20110831
  Serious: Yes (Hospitalization)
  Sender: FDA-Public Use
  Company Number: US-BIOGENIDEC-2010BI039732

PATIENT
  Age: 55 Year
  Sex: Male

DRUGS (1)
  1. TYSABRI [Suspect]
     Indication: MULTIPLE SCLEROSIS
     Route: 042
     Dates: start: 20081015, end: 20110301

REACTIONS (8)
  - VISION BLURRED [None]
  - HYPERSENSITIVITY [None]
  - BALANCE DISORDER [None]
  - INTERVERTEBRAL DISC DISORDER [None]
  - FATIGUE [None]
  - MUSCULOSKELETAL STIFFNESS [None]
  - GAIT DISTURBANCE [None]
  - MUSCLE SPASTICITY [None]
